FAERS Safety Report 10064355 (Version 1)
Quarter: 2014Q2

REPORT INFORMATION
  Report Type: Spontaneous
  Country: US (occurrence: None)
  Receive Date: 20140407
  Receipt Date: 20140407
  Transmission Date: 20141212
  Serious: Yes (Life-Threatening, Hospitalization)
  Sender: FDA-Public Use
  Company Number: None

PATIENT
  Age: 30 Year
  Sex: Male

DRUGS (1)
  1. METOCLOPRAMIDE [Suspect]
     Route: 042

REACTIONS (10)
  - Dystonia [None]
  - Cardio-respiratory arrest [None]
  - Tachycardia [None]
  - Hyperhidrosis [None]
  - Facial asymmetry [None]
  - Tachypnoea [None]
  - VIIth nerve paralysis [None]
  - Trismus [None]
  - Tongue disorder [None]
  - Unevaluable event [None]
